FAERS Safety Report 5452838-X (Version None)
Quarter: 2007Q3

REPORT INFORMATION
  Report Type: 
  Country: None (occurrence: None)
  Receive Date: 20070914
  Receipt Date: 20070911
  Transmission Date: 20080115
  Serious: Yes (Life-Threatening, Hospitalization)
  Sender: FDA-Public Use
  Company Number: PHEH2007US11938

PATIENT
  Age: 80 Year
  Sex: Male
  Weight: 118.73 kg

DRUGS (2)
  1. TEKTURNA [Suspect]
     Dosage: 150 MG, QD
     Route: 048
     Dates: start: 20070129, end: 20070827
  2. DIOVAN [Suspect]
     Dosage: UNK, UNK
     Route: 048

REACTIONS (4)
  - HYPOVOLAEMIA [None]
  - LABILE HYPERTENSION [None]
  - RENAL FAILURE ACUTE [None]
  - VOMITING [None]
